FAERS Safety Report 9770544 (Version 1)
Quarter: 2013Q4

REPORT INFORMATION
  Report Type: Spontaneous
  Country: US (occurrence: US)
  Receive Date: 20131218
  Receipt Date: 20131218
  Transmission Date: 20140711
  Serious: Yes (Disabling, Other)
  Sender: FDA-Public Use
  Company Number: US-BAYER-2013-154015

PATIENT
  Age: 43 Year
  Sex: Male

DRUGS (18)
  1. MAGNEVIST [Suspect]
     Indication: NUCLEAR MAGNETIC RESONANCE IMAGING ABDOMINAL
     Dosage: 20 ML, ONCE
     Route: 042
     Dates: start: 20040105, end: 20040105
  2. MAGNEVIST [Suspect]
     Indication: COMPLICATIONS OF TRANSPLANTED KIDNEY
     Dosage: 40 ML, ONCE
     Route: 042
     Dates: start: 20040126, end: 20040126
  3. MAGNEVIST [Suspect]
     Indication: ABDOMINAL PAIN
     Dosage: 10 ML, ONCE
     Route: 042
     Dates: start: 20051005, end: 20051005
  4. MAGNEVIST [Suspect]
     Indication: ANGIOGRAM
  5. MAGNEVIST [Suspect]
     Indication: INTESTINAL ISCHAEMIA
  6. MAGNEVIST [Suspect]
     Indication: NUCLEAR MAGNETIC RESONANCE IMAGING BRAIN
  7. MAGNEVIST [Suspect]
     Indication: BLOOD PROLACTIN INCREASED
  8. PREDNISONE [Concomitant]
  9. CELLCEPT [Concomitant]
  10. TACROLIMUS [Concomitant]
  11. NIFEREX-150 FORTE [Concomitant]
  12. CALCITRIOL [Concomitant]
  13. METOPROLOL [Concomitant]
  14. RENAGEL [SEVELAMER] [Concomitant]
  15. DARBEPOETIN ALFA [Concomitant]
  16. AMLODIPINE [Concomitant]
  17. LASIX [Concomitant]
  18. EPOGEN [Concomitant]

REACTIONS (13)
  - Nephrogenic systemic fibrosis [None]
  - Arthralgia [None]
  - Musculoskeletal stiffness [None]
  - Joint contracture [None]
  - Mobility decreased [None]
  - Gait disturbance [None]
  - Abasia [None]
  - Skin discolouration [None]
  - Joint stiffness [None]
  - Skin tightness [None]
  - Skin induration [None]
  - Joint range of motion decreased [None]
  - Hyperkeratosis [None]
